FAERS Safety Report 8438440-6 (Version None)
Quarter: 2012Q2

REPORT INFORMATION
  Report Type: 
  Country: None (occurrence: None)
  Receive Date: 20120614
  Receipt Date: 20120612
  Transmission Date: 20120825
  Serious: Yes (Other)
  Sender: FDA-Public Use
  Company Number: CHPA2012US010757

PATIENT
  Sex: Female

DRUGS (2)
  1. PHENYLEPHRINE HCL [Suspect]
     Indication: NASAL CONGESTION
     Dosage: UNK, PRN
     Route: 045
  2. PHENYLEPHRINE HYDROCHLORIDE [Suspect]
     Indication: NASAL CONGESTION
     Dosage: UNK, PRN
     Route: 045

REACTIONS (2)
  - OFF LABEL USE [None]
  - BRONCHOPNEUMONIA [None]
